FAERS Safety Report 25586771 (Version 3)
Quarter: 2025Q3

REPORT INFORMATION
  Report Type: Report from Study
  Country: US (occurrence: US)
  Receive Date: 20250721
  Receipt Date: 20250929
  Transmission Date: 20251021
  Serious: Yes (Other)
  Sender: TAIHO ONCOLOGY INC
  Company Number: US-TAIHOP-2025-007562

PATIENT
  Age: 71 Year
  Sex: Female
  Weight: 86.1 kg

DRUGS (3)
  1. INQOVI [Suspect]
     Active Substance: CEDAZURIDINE\DECITABINE
     Indication: Leukaemia
     Route: 048
  2. REVUFORJ [Concomitant]
     Active Substance: REVUMENIB CITRATE
     Indication: Leukaemia
     Dosage: CURRENT DOSE WAS DECREASED
     Dates: start: 20241221
  3. VENCLEXTA [Concomitant]
     Active Substance: VENETOCLAX
     Indication: Leukaemia
     Dosage: DAILY FOR 7 DAYS OF A 28 DAY CYCLE, CURRENT DOSE CHANGED TO 5 DAYS ON, 30-35 DAYS OFF
     Dates: start: 20241221

REACTIONS (4)
  - Cytopenia [Unknown]
  - Platelet count decreased [Unknown]
  - Vital functions abnormal [Unknown]
  - Product use in unapproved indication [Unknown]
